FAERS Safety Report 17443997 (Version 1)
Quarter: 2020Q1

REPORT INFORMATION
  Report Type: Spontaneous
  Country: US (occurrence: US)
  Receive Date: 20200220
  Receipt Date: 20200220
  Transmission Date: 20200409
  Serious: Yes (Other)
  Sender: FDA-Public Use
  Company Number: None

PATIENT
  Age: 32 Year
  Sex: Female
  Weight: 62.6 kg

DRUGS (1)
  1. MIRENA [Suspect]
     Active Substance: LEVONORGESTREL
     Indication: CONTRACEPTION

REACTIONS (14)
  - Libido decreased [None]
  - Withdrawal syndrome [None]
  - Somatic symptom disorder of pregnancy [None]
  - Blindness [None]
  - Mood swings [None]
  - Vaginal haemorrhage [None]
  - Feeling abnormal [None]
  - Nausea [None]
  - Migraine [None]
  - Influenza [None]
  - Disturbance in attention [None]
  - Impaired driving ability [None]
  - Impaired work ability [None]
  - Pain [None]

NARRATIVE: CASE EVENT DATE: 20200211
